FAERS Safety Report 24133519 (Version 1)
Quarter: 2024Q3

REPORT INFORMATION
  Report Type: Spontaneous
  Country: US (occurrence: US)
  Receive Date: 20240724
  Receipt Date: 20240724
  Transmission Date: 20241017
  Serious: Yes (Other)
  Sender: CIPLA
  Company Number: US-MLMSERVICE-20240705-PI120623-00218-1

PATIENT

DRUGS (54)
  1. AZACITIDINE [Suspect]
     Active Substance: AZACITIDINE
     Indication: Metastases to lymph nodes
     Dosage: 525 MILLIGRAM/SQ. METER, 1 CYCLICAL (75 MG/M2 ON DAYS 8-14)
     Route: 065
  2. AZACITIDINE [Suspect]
     Active Substance: AZACITIDINE
     Indication: Intestinal metastasis
  3. AZACITIDINE [Suspect]
     Active Substance: AZACITIDINE
     Indication: Metastases to soft tissue
  4. AZACITIDINE [Suspect]
     Active Substance: AZACITIDINE
     Indication: Diffuse large B-cell lymphoma
  5. AZACITIDINE [Suspect]
     Active Substance: AZACITIDINE
     Indication: Metastases to chest wall
  6. AZACITIDINE [Suspect]
     Active Substance: AZACITIDINE
     Indication: Acute myeloid leukaemia
  7. CYCLOPHOSPHAMIDE [Suspect]
     Active Substance: CYCLOPHOSPHAMIDE
     Indication: Metastases to chest wall
     Dosage: 300 MILLIGRAM/SQ. METER, 1 CYCLICAL (300 MG/M2 ON DAY 1)
     Route: 065
  8. CYCLOPHOSPHAMIDE [Suspect]
     Active Substance: CYCLOPHOSPHAMIDE
     Indication: Acute myeloid leukaemia
  9. CYCLOPHOSPHAMIDE [Suspect]
     Active Substance: CYCLOPHOSPHAMIDE
     Indication: Metastases to lymph nodes
  10. CYCLOPHOSPHAMIDE [Suspect]
     Active Substance: CYCLOPHOSPHAMIDE
     Indication: Metastases to soft tissue
  11. CYCLOPHOSPHAMIDE [Suspect]
     Active Substance: CYCLOPHOSPHAMIDE
     Indication: Intestinal metastasis
  12. CYCLOPHOSPHAMIDE [Suspect]
     Active Substance: CYCLOPHOSPHAMIDE
     Indication: Diffuse large B-cell lymphoma
  13. OBINUTUZUMAB [Suspect]
     Active Substance: OBINUTUZUMAB
     Indication: Intestinal metastasis
     Dosage: 5000 MILLIGRAM 1 CYCLICAL (1000 MG ON DAYS 1, 8, 15, 22, AND 29)
     Route: 065
  14. OBINUTUZUMAB [Suspect]
     Active Substance: OBINUTUZUMAB
     Indication: Acute myeloid leukaemia
  15. OBINUTUZUMAB [Suspect]
     Active Substance: OBINUTUZUMAB
     Indication: Metastases to soft tissue
  16. OBINUTUZUMAB [Suspect]
     Active Substance: OBINUTUZUMAB
     Indication: Diffuse large B-cell lymphoma
  17. OBINUTUZUMAB [Suspect]
     Active Substance: OBINUTUZUMAB
     Indication: Metastases to lymph nodes
  18. OBINUTUZUMAB [Suspect]
     Active Substance: OBINUTUZUMAB
     Indication: Metastases to chest wall
  19. METHYLPREDNISOLONE [Suspect]
     Active Substance: METHYLPREDNISOLONE
     Indication: Metastases to soft tissue
     Dosage: 420 MILLIGRAM/SQ. METER, 1 CYCLICAL (30 MG/M2 TWICE DAILY [BID] ON DAYS 1?7)
     Route: 065
  20. METHYLPREDNISOLONE [Suspect]
     Active Substance: METHYLPREDNISOLONE
     Indication: Acute myeloid leukaemia
  21. METHYLPREDNISOLONE [Suspect]
     Active Substance: METHYLPREDNISOLONE
     Indication: Intestinal metastasis
  22. METHYLPREDNISOLONE [Suspect]
     Active Substance: METHYLPREDNISOLONE
     Indication: Metastases to lymph nodes
  23. METHYLPREDNISOLONE [Suspect]
     Active Substance: METHYLPREDNISOLONE
     Indication: Diffuse large B-cell lymphoma
  24. METHYLPREDNISOLONE [Suspect]
     Active Substance: METHYLPREDNISOLONE
     Indication: Metastases to chest wall
  25. METHOTREXATE [Suspect]
     Active Substance: METHOTREXATE
     Indication: Intestinal metastasis
     Dosage: UNK
     Route: 037
  26. METHOTREXATE [Suspect]
     Active Substance: METHOTREXATE
     Indication: Diffuse large B-cell lymphoma
  27. METHOTREXATE [Suspect]
     Active Substance: METHOTREXATE
     Indication: Metastases to soft tissue
  28. METHOTREXATE [Suspect]
     Active Substance: METHOTREXATE
     Indication: Metastases to lymph nodes
  29. METHOTREXATE [Suspect]
     Active Substance: METHOTREXATE
     Indication: Acute myeloid leukaemia
  30. METHOTREXATE [Suspect]
     Active Substance: METHOTREXATE
     Indication: Metastases to chest wall
  31. VENETOCLAX [Suspect]
     Active Substance: VENETOCLAX
     Indication: Intestinal metastasis
     Dosage: 11200 MILLIGRAM, 1 CYCLICAL (400 MG ON DAYS 8-35)
     Route: 065
  32. VENETOCLAX [Suspect]
     Active Substance: VENETOCLAX
     Indication: Metastases to chest wall
  33. VENETOCLAX [Suspect]
     Active Substance: VENETOCLAX
     Indication: Metastases to lymph nodes
  34. VENETOCLAX [Suspect]
     Active Substance: VENETOCLAX
     Indication: Diffuse large B-cell lymphoma
  35. VENETOCLAX [Suspect]
     Active Substance: VENETOCLAX
     Indication: Acute myeloid leukaemia
  36. VENETOCLAX [Suspect]
     Active Substance: VENETOCLAX
     Indication: Metastases to soft tissue
  37. VINCRISTINE [Suspect]
     Active Substance: VINCRISTINE
     Indication: Metastases to lymph nodes
     Dosage: 1 MILLIGRAM/SQ. METER, 1 CYCLICAL (1 MG/M2 ON DAY 1)
     Route: 065
  38. VINCRISTINE [Suspect]
     Active Substance: VINCRISTINE
     Indication: Metastases to chest wall
  39. VINCRISTINE [Suspect]
     Active Substance: VINCRISTINE
     Indication: Intestinal metastasis
  40. VINCRISTINE [Suspect]
     Active Substance: VINCRISTINE
     Indication: Diffuse large B-cell lymphoma
  41. VINCRISTINE [Suspect]
     Active Substance: VINCRISTINE
     Indication: Acute myeloid leukaemia
  42. VINCRISTINE [Suspect]
     Active Substance: VINCRISTINE
     Indication: Metastases to soft tissue
  43. HYDROCORTISONE [Suspect]
     Active Substance: HYDROCORTISONE\HYDROCORTISONE ACETATE
     Indication: Metastases to lymph nodes
     Dosage: UNK
     Route: 037
  44. HYDROCORTISONE [Suspect]
     Active Substance: HYDROCORTISONE\HYDROCORTISONE ACETATE
     Indication: Acute myeloid leukaemia
  45. HYDROCORTISONE [Suspect]
     Active Substance: HYDROCORTISONE\HYDROCORTISONE ACETATE
     Indication: Metastases to soft tissue
  46. HYDROCORTISONE [Suspect]
     Active Substance: HYDROCORTISONE\HYDROCORTISONE ACETATE
     Indication: Intestinal metastasis
  47. HYDROCORTISONE [Suspect]
     Active Substance: HYDROCORTISONE\HYDROCORTISONE ACETATE
     Indication: Diffuse large B-cell lymphoma
  48. HYDROCORTISONE [Suspect]
     Active Substance: HYDROCORTISONE\HYDROCORTISONE ACETATE
     Indication: Metastases to chest wall
  49. CYTARABINE [Suspect]
     Active Substance: CYTARABINE
     Indication: Metastases to chest wall
     Dosage: UNK
     Route: 037
  50. CYTARABINE [Suspect]
     Active Substance: CYTARABINE
     Indication: Diffuse large B-cell lymphoma
  51. CYTARABINE [Suspect]
     Active Substance: CYTARABINE
     Indication: Intestinal metastasis
  52. CYTARABINE [Suspect]
     Active Substance: CYTARABINE
     Indication: Acute myeloid leukaemia
  53. CYTARABINE [Suspect]
     Active Substance: CYTARABINE
     Indication: Metastases to lymph nodes
  54. CYTARABINE [Suspect]
     Active Substance: CYTARABINE
     Indication: Metastases to soft tissue

REACTIONS (7)
  - Brain abscess [Unknown]
  - Gastric varices [Unknown]
  - Endocarditis bacterial [Unknown]
  - Venous thrombosis [Unknown]
  - Bacillus infection [Unknown]
  - Clostridium difficile colitis [Unknown]
  - Bacterial sepsis [Unknown]
